FAERS Safety Report 7338816-4 (Version None)
Quarter: 2011Q1

REPORT INFORMATION
  Report Type: 
  Country: None (occurrence: None)
  Receive Date: 20110308
  Receipt Date: 20110302
  Transmission Date: 20110831
  Serious: Yes (Hospitalization, Other)
  Sender: FDA-Public Use
  Company Number: BE-MERCK-1101BEL00003

PATIENT
  Sex: Female
  Weight: 79 kg

DRUGS (12)
  1. ESCITALOPRAM OXALATE [Concomitant]
     Route: 048
     Dates: start: 20060126
  2. VYTORIN [Suspect]
     Route: 048
  3. BISOPROLOL [Concomitant]
     Indication: HYPERTENSION
     Route: 048
     Dates: start: 20060126
  4. ZOLPIDEM TARTRATE [Concomitant]
     Route: 048
     Dates: end: 20101124
  5. VYTORIN [Suspect]
     Indication: HYPERCHOLESTEROLAEMIA
     Route: 048
     Dates: start: 20060126, end: 20100929
  6. ACENOCOUMAROL [Suspect]
     Indication: HEART VALVE REPLACEMENT
     Route: 048
     Dates: start: 20060126
  7. PANTOPRAZOLE SODIUM [Concomitant]
     Route: 048
     Dates: start: 20060126
  8. ENOXAPARIN SODIUM [Concomitant]
     Route: 051
     Dates: start: 20101101
  9. LERCANIDIPINE HYDROCHLORIDE [Concomitant]
     Indication: HYPERTENSION
     Route: 048
     Dates: start: 20100921
  10. TRAMADOL HYDROCHLORIDE [Concomitant]
     Indication: PAIN
     Route: 065
     Dates: start: 20101101
  11. VYTORIN [Suspect]
     Route: 048
     Dates: start: 20100930, end: 20101126
  12. INDAPAMIDE AND PERINDOPRIL ERBUMINE [Concomitant]
     Indication: HYPERTENSION
     Route: 048
     Dates: start: 20100921

REACTIONS (19)
  - INTERNATIONAL NORMALISED RATIO INCREASED [None]
  - OEDEMA PERIPHERAL [None]
  - INTESTINAL POLYP [None]
  - DIARRHOEA [None]
  - MUSCULAR WEAKNESS [None]
  - MYALGIA [None]
  - LIMB DISCOMFORT [None]
  - CONSTIPATION [None]
  - MUSCLE SPASMS [None]
  - ALOPECIA [None]
  - ANAEMIA [None]
  - INGUINAL HERNIA [None]
  - INFECTION [None]
  - PARAESTHESIA [None]
  - SUBDURAL HAEMATOMA [None]
  - SKIN NECROSIS [None]
  - HAEMORRHAGE [None]
  - HAEMATOMA [None]
  - TRAUMATIC HAEMATOMA [None]
